FAERS Safety Report 8558550-2 (Version None)
Quarter: 2012Q3

REPORT INFORMATION
  Report Type: 
  Country: None (occurrence: None)
  Receive Date: 20120801
  Receipt Date: 20120724
  Transmission Date: 20120928
  Serious: Yes (Life-Threatening, Hospitalization)
  Sender: FDA-Public Use
  Company Number: JP-CELGENEUS-087-50794-12073241

PATIENT
  Sex: Female
  Weight: 40 kg

DRUGS (7)
  1. VIDAZA [Suspect]
     Dosage: 75 MILLIGRAM/SQ. METER
     Route: 058
     Dates: start: 20120423, end: 20120429
  2. ITRACONAZOLE [Concomitant]
     Route: 065
     Dates: start: 20120425, end: 20120518
  3. ZOFRAN [Concomitant]
     Route: 065
     Dates: start: 20120423, end: 20120429
  4. MAXIPIME [Concomitant]
     Route: 065
     Dates: start: 20120503, end: 20120511
  5. MAXIPIME [Concomitant]
     Route: 065
     Dates: start: 20120515, end: 20120521
  6. GARENOXACIN MESYLATE [Concomitant]
     Route: 065
     Dates: start: 20120514, end: 20120514
  7. GRANISETRON [Concomitant]
     Route: 065
     Dates: start: 20120207, end: 20120213

REACTIONS (2)
  - BLAST CELL COUNT INCREASED [None]
  - HEPATIC FUNCTION ABNORMAL [None]
